FAERS Safety Report 6495072-7 (Version None)
Quarter: 2009Q4

REPORT INFORMATION
  Report Type: 
  Country: None (occurrence: None)
  Receive Date: 20091214
  Receipt Date: 20090428
  Transmission Date: 20100525
  Serious: No
  Sender: FDA-Public Use
  Company Number: US-BRISTOL-MYERS SQUIBB COMPANY-14603559

PATIENT
  Age: 43 Year
  Sex: Female

DRUGS (2)
  1. ABILIFY [Suspect]
     Indication: BIPOLAR DISORDER
     Dosage: PATEIENT STARTED WITH 10MG.
  2. ABILIFY [Suspect]
     Indication: DEPRESSION
     Dosage: PATEIENT STARTED WITH 10MG.

REACTIONS (1)
  - RASH [None]
